FAERS Safety Report 8560910-0 (Version None)
Quarter: 2012Q3

REPORT INFORMATION
  Report Type: 
  Country: None (occurrence: None)
  Receive Date: 20120802
  Receipt Date: 20120723
  Transmission Date: 20120928
  Serious: Yes (Other)
  Sender: FDA-Public Use
  Company Number: BR-BRISTOL-MYERS SQUIBB COMPANY-16799199

PATIENT
  Age: 67 Year
  Sex: Female
  Weight: 59 kg

DRUGS (2)
  1. METFORMIN HYDROCHLORIDE [Concomitant]
     Indication: DIABETES MELLITUS
     Dosage: 1DF: HALF TAB IN EVERY MEAL
     Route: 048
     Dates: start: 20060101
  2. IRBESARTAN AND HYDROCHLOROTHIAZIDE [Suspect]
     Indication: HYPERTENSION
     Dosage: 1DF: HALF TAB APROZIDE 300MG+12.5MG COATED TABS
     Route: 048
     Dates: start: 20060101

REACTIONS (3)
  - NECK PAIN [None]
  - MEDICATION ERROR [None]
  - GLAUCOMA [None]
